FAERS Safety Report 24069442 (Version 4)
Quarter: 2024Q3

REPORT INFORMATION
  Report Type: Report from Study
  Country: CN (occurrence: CN)
  Receive Date: 20240710
  Receipt Date: 20240822
  Transmission Date: 20241016
  Serious: Yes (Hospitalization)
  Sender: ROCHE
  Company Number: CN-ROCHE-3525004

PATIENT
  Age: 53 Year
  Sex: Female

DRUGS (1)
  1. ALECTINIB [Suspect]
     Active Substance: ALECTINIB
     Indication: Non-small cell lung cancer metastatic
     Dosage: LAST DOSE ADMINISTERED PRIOR TO SAE: 600 MG?MOST RECENT DOSE ADMINISTERED PRIOR TO SAE: 19/JUN/2022
     Route: 048
     Dates: start: 20220325

REACTIONS (1)
  - Sinus node dysfunction [Recovered/Resolved]

NARRATIVE: CASE EVENT DATE: 20220617
